FAERS Safety Report 13861421 (Version 1)
Quarter: 2017Q3

REPORT INFORMATION
  Report Type: Spontaneous
  Country: US (occurrence: US)
  Receive Date: 20170811
  Receipt Date: 20170811
  Transmission Date: 20171127
  Serious: Yes (Hospitalization)
  Sender: FDA-Public Use
  Company Number: US-LEXICON PHARMACEUTICALS, INC-17-1606-00640

PATIENT
  Sex: Female

DRUGS (3)
  1. XELODA [Concomitant]
     Active Substance: CAPECITABINE
  2. TELOTRISTAT ETHYL [Suspect]
     Active Substance: TELOTRISTAT ETHYL
     Indication: CARCINOID TUMOUR
     Route: 048
     Dates: start: 2017
  3. TEMODAR [Concomitant]
     Active Substance: TEMOZOLOMIDE

REACTIONS (5)
  - Off label use [Unknown]
  - Stress [Unknown]
  - Pneumonia [Recovered/Resolved]
  - Peripheral swelling [Not Recovered/Not Resolved]
  - Localised infection [Not Recovered/Not Resolved]

NARRATIVE: CASE EVENT DATE: 2017
